FAERS Safety Report 26181772 (Version 1)
Quarter: 2025Q4

REPORT INFORMATION
  Report Type: Spontaneous
  Country: US (occurrence: US)
  Receive Date: 20251221
  Receipt Date: 20251221
  Transmission Date: 20260118
  Serious: Yes (Other)
  Sender: ACCORD
  Company Number: US-MLMSERVICE-20251201-PI734180-00295-1

PATIENT
  Age: 35 Year
  Sex: Male

DRUGS (1)
  1. SERTRALINE [Suspect]
     Active Substance: SERTRALINE HYDROCHLORIDE
     Indication: Product used for unknown indication
     Dates: start: 2013

REACTIONS (2)
  - Iron deficiency anaemia [Recovered/Resolved]
  - Collagenous gastritis [Recovered/Resolved]

NARRATIVE: CASE EVENT DATE: 20160101
